FAERS Safety Report 8307019-9 (Version None)
Quarter: 2012Q2

REPORT INFORMATION
  Report Type: 
  Country: None (occurrence: None)
  Receive Date: 20120424
  Receipt Date: 20120418
  Transmission Date: 20120825
  Serious: Yes (Other)
  Sender: FDA-Public Use
  Company Number: PHEH2012US008516

PATIENT

DRUGS (2)
  1. AREDIA [Suspect]
     Route: 042
  2. ZOMETA [Suspect]
     Route: 042

REACTIONS (6)
  - INFECTION [None]
  - OSTEONECROSIS OF JAW [None]
  - PAIN [None]
  - DEFORMITY [None]
  - BONE LOSS [None]
  - INJURY [None]
